FAERS Safety Report 22914824 (Version 2)
Quarter: 2024Q1

REPORT INFORMATION
  Report Type: Spontaneous
  Country: DE (occurrence: DE)
  Receive Date: 20230907
  Receipt Date: 20240111
  Transmission Date: 20240410
  Serious: Yes (Hospitalization)
  Sender: FDA-Public Use
  Company Number: DE-002147023-NVSC2023DE191641

PATIENT
  Sex: Female

DRUGS (4)
  1. AZOPT [Suspect]
     Active Substance: BRINZOLAMIDE
     Dosage: 2 DOSAGE FORM, QD
     Route: 047
     Dates: start: 2015
  2. AZOPT [Suspect]
     Active Substance: BRINZOLAMIDE
     Indication: Product used for unknown indication
     Dosage: UNK, BID
     Route: 047
     Dates: start: 2015
  3. TIMOLOL MALEATE\TRAVOPROST [Suspect]
     Active Substance: TIMOLOL MALEATE\TRAVOPROST
     Dosage: 1 DOSAGE FORM, QD
     Route: 047
     Dates: start: 2015
  4. TIMOLOL MALEATE\TRAVOPROST [Suspect]
     Active Substance: TIMOLOL MALEATE\TRAVOPROST
     Indication: Product used for unknown indication
     Dosage: UNK, QD
     Route: 047
     Dates: start: 2015

REACTIONS (5)
  - Foot fracture [Unknown]
  - Fall [Unknown]
  - Product availability issue [Unknown]
  - Disturbance in attention [Unknown]
  - Product substitution issue [Unknown]
